FAERS Safety Report 8369378-0 (Version None)
Quarter: 2012Q2

REPORT INFORMATION
  Report Type: 
  Country: None (occurrence: None)
  Receive Date: 20120518
  Receipt Date: 20120508
  Transmission Date: 20120825
  Serious: Yes (Hospitalization)
  Sender: FDA-Public Use
  Company Number: KR-MPIJNJ-2012-02316

PATIENT

DRUGS (14)
  1. EBASTINE [Concomitant]
     Indication: ANTIALLERGIC THERAPY
     Dosage: 10 MG, UNK
     Route: 048
     Dates: start: 20120315
  2. TAMSULOSIN HCL [Concomitant]
     Indication: BENIGN PROSTATIC HYPERPLASIA
     Dosage: UNK
     Route: 048
     Dates: start: 20120309
  3. CIPROFLOXACIN HCL [Concomitant]
     Indication: ANTIBIOTIC THERAPY
     Dosage: 250 MG, UNK
     Route: 048
     Dates: start: 20120313
  4. ZOVIRAX                            /00587301/ [Concomitant]
     Indication: ANTIVIRAL TREATMENT
     Dosage: 200 MG, UNK
     Route: 048
     Dates: start: 20120313
  5. STILNOX                            /00914901/ [Concomitant]
     Indication: SEDATIVE THERAPY
     Dosage: UNK
     Route: 042
     Dates: start: 20120309
  6. MEGESTROL ACETATE [Concomitant]
     Indication: INCREASED APPETITE
     Dosage: 10 ML, UNK
     Route: 048
     Dates: start: 20120312
  7. ZYLORIC                            /00003301/ [Concomitant]
     Indication: BLOOD URIC ACID
     Dosage: UNK
     Route: 048
     Dates: start: 20120309
  8. MELPHALAN HYDROCHLORIDE [Concomitant]
     Indication: MULTIPLE MYELOMA
     Dosage: 9 MG/M2, UNK
     Dates: start: 20120313, end: 20120316
  9. MECOBALAMIN [Concomitant]
     Dosage: UNK
     Route: 048
     Dates: start: 20120316
  10. VELCADE [Suspect]
     Indication: MULTIPLE MYELOMA
     Dosage: 1.3 MG/M2, UNK
     Route: 042
     Dates: start: 20120313, end: 20120410
  11. PREDNISOLONE [Concomitant]
     Indication: MULTIPLE MYELOMA
     Dosage: 60 MG/M2, UNK
     Dates: start: 20120313, end: 20120316
  12. CRESTOR [Concomitant]
     Indication: HYPERLIPIDAEMIA
     Dosage: 10 MG, UNK
     Route: 048
     Dates: start: 20120308
  13. ULTRACET [Concomitant]
     Indication: ANALGESIC THERAPY
     Dosage: UNK
     Route: 048
     Dates: start: 20120309
  14. ASPIRIN [Concomitant]
     Indication: THROMBOSIS PROPHYLAXIS
     Dosage: 100 MG, UNK
     Route: 048
     Dates: start: 20120308

REACTIONS (5)
  - BACTERIAL INFECTION [None]
  - DIARRHOEA [None]
  - THROMBOCYTOPENIA [None]
  - BRONCHIOLITIS [None]
  - PERIPHERAL SENSORY NEUROPATHY [None]
